FAERS Safety Report 20948024 (Version 1)
Quarter: 2022Q2

REPORT INFORMATION
  Report Type: Spontaneous
  Country: US (occurrence: US)
  Receive Date: 20220611
  Receipt Date: 20220611
  Transmission Date: 20220720
  Serious: Yes (Other)
  Sender: FDA-Public Use
  Company Number: US-SA-SAC20220608001652

PATIENT
  Age: 63 Year
  Sex: Female

DRUGS (16)
  1. DUPIXENT [Suspect]
     Active Substance: DUPILUMAB
     Dosage: 300 MG, QOW
     Route: 058
     Dates: start: 20220526
  2. CALCIUM [Concomitant]
     Active Substance: CALCIUM
  3. CARVEDILOL [Concomitant]
     Active Substance: CARVEDILOL
  4. HYDROCHLOROTHIAZIDE [Concomitant]
     Active Substance: HYDROCHLOROTHIAZIDE
  5. KETOCONAZOLE [Concomitant]
     Active Substance: KETOCONAZOLE
  6. LOSARTAN POTASSIUM [Concomitant]
     Active Substance: LOSARTAN POTASSIUM
  7. VITAMINS [Concomitant]
     Active Substance: VITAMINS
  8. OCUVITE + LUTEIN [Concomitant]
  9. MODERNA COVID-19 VACCINE [Concomitant]
     Active Substance: ELASOMERAN
  10. TRIAMCINOLONE ACETONIDE [Concomitant]
     Active Substance: TRIAMCINOLONE ACETONIDE
  11. VITAMIN D3 [Concomitant]
     Active Substance: CHOLECALCIFEROL
  12. DOXEPIN HYDROCHLORIDE [Concomitant]
     Active Substance: DOXEPIN HYDROCHLORIDE
  13. FLUCONAZOLE [Concomitant]
     Active Substance: FLUCONAZOLE
  14. PREDNISONE [Concomitant]
     Active Substance: PREDNISONE
  15. PERMETHRIN [Concomitant]
     Active Substance: PERMETHRIN
  16. BETAMETHASONE DIPROPIONATE [Concomitant]
     Active Substance: BETAMETHASONE DIPROPIONATE

REACTIONS (5)
  - Autoimmune disorder [Unknown]
  - Pruritus [Unknown]
  - Blister [Unknown]
  - Middle insomnia [Unknown]
  - Injection site pain [Unknown]
